FAERS Safety Report 6816291-3 (Version None)
Quarter: 2010Q2

REPORT INFORMATION
  Report Type: 
  Country: None (occurrence: None)
  Receive Date: 20100630
  Receipt Date: 20100615
  Transmission Date: 20101027
  Serious: Yes (Other)
  Sender: FDA-Public Use
  Company Number: MPS1-1000315

PATIENT
  Age: 29 Year
  Sex: Male
  Weight: 28 kg

DRUGS (2)
  1. ALDURAZYME [Suspect]
     Indication: MUCOPOLYSACCHARIDOSIS
     Dosage: 20.3 MG, 1X/W, INTRAVENOUS
     Route: 042
     Dates: start: 20070103, end: 20100501
  2. ANTIBIOTICS [Concomitant]

REACTIONS (11)
  - ANAEMIA [None]
  - BLOOD IMMUNOGLOBULIN G INCREASED [None]
  - FATIGUE [None]
  - GASTROINTESTINAL HYPOMOTILITY [None]
  - INSOMNIA [None]
  - INTESTINAL DILATATION [None]
  - IRON DEFICIENCY [None]
  - PLATELET COUNT DECREASED [None]
  - RED BLOOD CELL COUNT DECREASED [None]
  - URINARY GLYCOSAMINOGLYCANS INCREASED [None]
  - WHITE BLOOD CELL COUNT DECREASED [None]
